FAERS Safety Report 12252220 (Version 1)
Quarter: 2016Q2

REPORT INFORMATION
  Report Type: Spontaneous
  Country: VE (occurrence: VE)
  Receive Date: 20160411
  Receipt Date: 20160411
  Transmission Date: 20160815
  Serious: Yes (Other)
  Sender: FDA-Public Use
  Company Number: PHHY2016VE045427

PATIENT
  Sex: Female

DRUGS (2)
  1. QUETIDIN [Concomitant]
     Indication: SEDATIVE THERAPY
     Dosage: 100 MG, QD
     Route: 065
     Dates: start: 2012
  2. STALEVO [Suspect]
     Active Substance: CARBIDOPA\ENTACAPONE\LEVODOPA
     Indication: PARKINSON^S DISEASE
     Dosage: 150 MG, QD
     Route: 065
     Dates: start: 2012

REACTIONS (6)
  - Abasia [Not Recovered/Not Resolved]
  - Gait disturbance [Not Recovered/Not Resolved]
  - Malaise [Not Recovered/Not Resolved]
  - Dysstasia [Not Recovered/Not Resolved]
  - Dementia Alzheimer^s type [Not Recovered/Not Resolved]
  - Tremor [Not Recovered/Not Resolved]
